FAERS Safety Report 7507053-2 (Version None)
Quarter: 2011Q2

REPORT INFORMATION
  Report Type: 
  Country: None (occurrence: None)
  Receive Date: 20110526
  Receipt Date: 20110516
  Transmission Date: 20111010
  Serious: Yes (Other)
  Sender: FDA-Public Use
  Company Number: US-UCBSA-016869

PATIENT
  Sex: Male
  Weight: 79.5 kg

DRUGS (15)
  1. RIFAMPIN [Concomitant]
     Route: 048
     Dates: start: 20100802, end: 20100815
  2. CYANOCOBALAMIN [Concomitant]
     Indication: VITAMIN SUPPLEMENTATION
     Route: 048
  3. AZATHIOPRINE [Concomitant]
     Indication: CROHN'S DISEASE
     Route: 048
     Dates: start: 20100322, end: 20100401
  4. PREDNISONE [Suspect]
     Indication: CROHN'S DISEASE
     Route: 048
     Dates: start: 20060101
  5. RIFAMPIN [Concomitant]
     Indication: CROHN'S DISEASE
     Dosage: 2 PILLS
     Dates: start: 20100601, end: 20100101
  6. PRISTIQ [Concomitant]
     Indication: DEPRESSION
     Route: 048
     Dates: start: 20100101
  7. ENTOCORT EC [Concomitant]
     Indication: CROHN'S DISEASE
     Route: 048
     Dates: start: 20100322, end: 20100401
  8. RIFAMPIN [Concomitant]
     Route: 048
     Dates: start: 20100802, end: 20100815
  9. PRISTIQ [Concomitant]
     Indication: BLOOD TESTOSTERONE DECREASED
     Route: 048
     Dates: start: 20100101
  10. LORAZEPAM [Concomitant]
     Indication: ANXIETY
     Dosage: BED TIME
     Route: 048
  11. TESTOSTERONE GEL 1% [Concomitant]
     Indication: BLOOD TESTOSTERONE DECREASED
     Route: 062
     Dates: start: 20100608
  12. CIMZIA [Suspect]
     Indication: CROHN'S DISEASE
     Route: 058
     Dates: start: 20100401, end: 20101001
  13. RIFAMPIN [Concomitant]
     Indication: SMALL INTESTINAL BACTERIAL OVERGROWTH
     Dosage: 2 PILLS
     Dates: start: 20100601, end: 20100101
  14. AZATHIOPRINE [Concomitant]
     Route: 048
     Dates: start: 20100907, end: 20100901
  15. WELCHOL [Concomitant]
     Route: 048

REACTIONS (13)
  - OEDEMA PERIPHERAL [None]
  - RASH [None]
  - HEADACHE [None]
  - PITUITARY TUMOUR [None]
  - DYSPNOEA [None]
  - EYE SWELLING [None]
  - JOINT SWELLING [None]
  - ARTHRALGIA [None]
  - LOCAL SWELLING [None]
  - ADRENAL INSUFFICIENCY [None]
  - ABDOMINAL DISTENSION [None]
  - ABDOMINAL PAIN [None]
  - APHAGIA [None]
